FAERS Safety Report 4464992-7 (Version None)
Quarter: 2004Q4

REPORT INFORMATION
  Report Type: 
  Country: None (occurrence: None)
  Receive Date: 20041004
  Receipt Date: 20040526
  Transmission Date: 20050328
  Serious: No
  Sender: FDA-Public Use
  Company Number: 370325

PATIENT
  Age: 64 Year
  Sex: Female

DRUGS (2)
  1. COREG [Suspect]
     Indication: ILL-DEFINED DISORDER
     Dosage: 3.125MG TWICE PER DAY
     Route: 048
     Dates: start: 20031201
  2. DIGOXIN [Concomitant]

REACTIONS (3)
  - FLATULENCE [None]
  - IRRITABILITY [None]
  - NAUSEA [None]
